FAERS Safety Report 5243860-7 (Version None)
Quarter: 2007Q1

REPORT INFORMATION
  Report Type: 
  Country: None (occurrence: None)
  Receive Date: 20070222
  Receipt Date: 20070213
  Transmission Date: 20070707
  Serious: Yes (Other)
  Sender: FDA-Public Use
  Company Number: US-JNJFOC-20070204634

PATIENT
  Sex: Male
  Weight: 55 kg

DRUGS (5)
  1. INFLIXIMAB [Suspect]
     Dosage: INFUSION STOPPED AFTER RECEIVING 7 CC.
     Route: 042
  2. INFLIXIMAB [Suspect]
     Indication: CROHN'S DISEASE
     Dosage: RECEIVED 22 ML OF THE 300 MG IN  250 ML OF SALINE
     Route: 042
  3. 6MP [Concomitant]
     Dosage: SELF DISCONTINUED FOUR MONTHS PRIOR TO EVENT
  4. PREDNISONE 50MG TAB [Concomitant]
     Dosage: PREMEDICATION
  5. HYDROCORTISONE [Concomitant]
     Dosage: PREMEDICATION

REACTIONS (2)
  - ADVERSE DRUG REACTION [None]
  - CHEST PAIN [None]
